FAERS Safety Report 17458228 (Version 1)
Quarter: 2020Q1

REPORT INFORMATION
  Report Type: Spontaneous
  Country: CH (occurrence: CH)
  Receive Date: 20200225
  Receipt Date: 20200225
  Transmission Date: 20200409
  Serious: Yes (Hospitalization)
  Sender: FDA-Public Use
  Company Number: CH-UCBSA-2020006563

PATIENT
  Age: 53 Year
  Sex: Female
  Weight: 44 kg

DRUGS (8)
  1. BILOL [Concomitant]
     Active Substance: BISOPROLOL
     Indication: PRODUCT USED FOR UNKNOWN INDICATION
     Route: 048
  2. DAFALGAN [Suspect]
     Active Substance: ACETAMINOPHEN
     Indication: RHINORRHOEA
  3. DAFALGAN [Suspect]
     Active Substance: ACETAMINOPHEN
     Indication: EAR PAIN
     Dosage: 3 GRAM, ONCE DAILY (QD)
     Route: 048
  4. KEPPRA [Suspect]
     Active Substance: LEVETIRACETAM
     Indication: EPILEPSY
     Dosage: 2X1000 MG DAILY
     Route: 048
  5. ESOMEP [Suspect]
     Active Substance: ESOMEPRAZOLE
     Indication: ARTERIOSCLEROSIS
     Dosage: 80 MILLIGRAM, ONCE DAILY (QD)
     Route: 048
  6. ATORVASTATIN PFIZER [Suspect]
     Active Substance: ATORVASTATIN
     Indication: ARTERIOSCLEROSIS
     Dosage: 80 MILLIGRAM, ONCE DAILY (QD)
     Route: 048
  7. PLAVIX [Concomitant]
     Active Substance: CLOPIDOGREL BISULFATE
     Indication: PRODUCT USED FOR UNKNOWN INDICATION
     Route: 048
  8. LAMICTAL [Suspect]
     Active Substance: LAMOTRIGINE
     Indication: EPILEPSY
     Dosage: 1.5 X 100MG DAILY
     Route: 048

REACTIONS (1)
  - Liver disorder [Recovering/Resolving]

NARRATIVE: CASE EVENT DATE: 20200123
